FAERS Safety Report 19827761 (Version 1)
Quarter: 2021Q3

REPORT INFORMATION
  Report Type: Spontaneous
  Country: US (occurrence: US)
  Receive Date: 20210914
  Receipt Date: 20210914
  Transmission Date: 20211014
  Serious: Yes (Other)
  Sender: FDA-Public Use
  Company Number: US-PFIZER INC-202101140429

PATIENT
  Age: 63 Year
  Sex: Female
  Weight: 72.56 kg

DRUGS (7)
  1. FIBER LAX [Concomitant]
     Active Substance: CALCIUM POLYCARBOPHIL
  2. PROTONEX [Concomitant]
  3. IBRANCE [Suspect]
     Active Substance: PALBOCICLIB
     Indication: BREAST CANCER
     Dosage: 125 MG, 21 DAYS ON, 7 DAYS OFF
     Route: 048
     Dates: start: 20210422
  4. ASPIRIN (E.C.) [Concomitant]
     Active Substance: ASPIRIN
  5. PHILLIPS COLON HEALTH [Concomitant]
  6. PROZAC [Concomitant]
     Active Substance: FLUOXETINE HYDROCHLORIDE
  7. DEXAMETHASONE. [Concomitant]
     Active Substance: DEXAMETHASONE

REACTIONS (7)
  - Abdominal discomfort [Unknown]
  - Diabetes mellitus [Unknown]
  - Fatigue [Unknown]
  - Tumour marker increased [Unknown]
  - Blood potassium decreased [Unknown]
  - Gastrooesophageal reflux disease [Unknown]
  - Hepatic enzyme abnormal [Unknown]
